FAERS Safety Report 12553268 (Version 1)
Quarter: 2016Q3

REPORT INFORMATION
  Report Type: Spontaneous
  Country: FR (occurrence: FR)
  Receive Date: 20160713
  Receipt Date: 20160713
  Transmission Date: 20161109
  Serious: Yes (Other)
  Sender: FDA-Public Use
  Company Number: FR-BAXTER-2016BAX033383

PATIENT
  Age: 65 Year
  Sex: Female

DRUGS (4)
  1. PARIET [Concomitant]
     Active Substance: RABEPRAZOLE SODIUM
     Indication: PRODUCT USED FOR UNKNOWN INDICATION
     Dosage: ON REQUEST
     Route: 048
  2. ENDOXAN 1000 MG, POUDRE POUR SOLUTION INJECTABLE [Suspect]
     Active Substance: CYCLOPHOSPHAMIDE
     Indication: MONOCLONAL GAMMOPATHY
     Dosage: CYCLES
     Route: 051
     Dates: start: 201510
  3. LEVOTHYROX [Concomitant]
     Active Substance: LEVOTHYROXINE
     Indication: PRODUCT USED FOR UNKNOWN INDICATION
     Dosage: 75 (UNITS NOT REPORTED)
     Route: 048
  4. ENDOXAN 1000 MG, POUDRE POUR SOLUTION INJECTABLE [Suspect]
     Active Substance: CYCLOPHOSPHAMIDE
     Indication: OFF LABEL USE

REACTIONS (3)
  - Dermatitis [Not Recovered/Not Resolved]
  - Off label use [Not Recovered/Not Resolved]
  - Prurigo [Not Recovered/Not Resolved]

NARRATIVE: CASE EVENT DATE: 20160402
